FAERS Safety Report 10073513 (Version 1)
Quarter: 2014Q2

REPORT INFORMATION
  Report Type: Spontaneous
  Country: US (occurrence: US)
  Receive Date: 20140411
  Receipt Date: 20140411
  Transmission Date: 20141212
  Serious: Yes (Hospitalization)
  Sender: FDA-Public Use
  Company Number: US-PFIZER INC-2014100785

PATIENT
  Age: 17 Year
  Sex: Female

DRUGS (4)
  1. ZIPRASIDONE HCL [Suspect]
     Dosage: UNK
  2. SERTRALINE HCL [Suspect]
     Dosage: UNK
  3. LAMOTRIGINE [Suspect]
     Dosage: UNK
  4. LANSOPRAZOLE [Suspect]
     Dosage: UNK

REACTIONS (4)
  - Hyperprolactinaemia [Recovered/Resolved]
  - Vaginal disorder [Unknown]
  - Galactorrhoea [Recovered/Resolved]
  - Breast enlargement [Unknown]
